FAERS Safety Report 11168263 (Version 3)
Quarter: 2015Q2

REPORT INFORMATION
  Report Type: Report from Study
  Country: US (occurrence: US)
  Receive Date: 20150605
  Receipt Date: 20150629
  Transmission Date: 20150821
  Serious: Yes (Hospitalization)
  Sender: FDA-Public Use
  Company Number: US-ACTELION-A-NJ2015-118948

PATIENT
  Age: 24 Year
  Sex: Female

DRUGS (1)
  1. VELETRI [Suspect]
     Active Substance: EPOPROSTENOL
     Indication: PULMONARY HYPERTENSION
     Dosage: 31 NG/KG, PER MIN
     Route: 042
     Dates: start: 20150116

REACTIONS (6)
  - Pain in jaw [Unknown]
  - Pregnancy [Unknown]
  - Headache [Unknown]
  - Anaemia [Unknown]
  - Live birth [Unknown]
  - Nausea [Unknown]

NARRATIVE: CASE EVENT DATE: 20150601
